FAERS Safety Report 11258993 (Version 1)
Quarter: 2015Q3

REPORT INFORMATION
  Report Type: Spontaneous
  Country: US (occurrence: None)
  Receive Date: 20150709
  Receipt Date: 20150709
  Transmission Date: 20151125
  Serious: No
  Sender: FDA-Public Use
  Company Number: None

PATIENT

DRUGS (5)
  1. BUPROPION. [Concomitant]
     Active Substance: BUPROPION
  2. XANAX [Concomitant]
     Active Substance: ALPRAZOLAM
  3. ALPRAZOLAM 0.25 [Suspect]
     Active Substance: ALPRAZOLAM
     Indication: SLEEP DISORDER
     Dosage: 4 AT NIGHT
     Route: 048
     Dates: start: 20150707, end: 20150708
  4. FLONASE [Concomitant]
     Active Substance: FLUTICASONE PROPIONATE
  5. HYDRCHLOTHIZIDE [Concomitant]

REACTIONS (6)
  - Product substitution issue [None]
  - Inability to afford medication [None]
  - Panic reaction [None]
  - Insomnia [None]
  - Stress [None]
  - Fatigue [None]

NARRATIVE: CASE EVENT DATE: 20150707
